FAERS Safety Report 14103639 (Version 1)
Quarter: 2017Q4

REPORT INFORMATION
  Report Type: Spontaneous
  Country: US (occurrence: US)
  Receive Date: 20171018
  Receipt Date: 20171018
  Transmission Date: 20180321
  Serious: No
  Sender: FDA-Public Use
  Company Number: US-TARO-2017TAR00411

PATIENT
  Sex: Female

DRUGS (2)
  1. HYDROCORTISONE VALERATE CREAM USP 0.2% [Suspect]
     Active Substance: HYDROCORTISONE VALERATE
     Dosage: UNK
     Route: 061
  2. HYDROCORTISONE VALERATE CREAM USP 0.2% [Suspect]
     Active Substance: HYDROCORTISONE VALERATE
     Dosage: UNK

REACTIONS (2)
  - Application site exfoliation [Unknown]
  - Application site vesicles [Unknown]
